FAERS Safety Report 13601726 (Version 1)
Quarter: 2017Q2

REPORT INFORMATION
  Report Type: Spontaneous
  Country: US (occurrence: US)
  Receive Date: 20170601
  Receipt Date: 20170601
  Transmission Date: 20170830
  Serious: No
  Sender: FDA-Public Use
  Company Number: US-BAUSCH-BL-2016-012102

PATIENT
  Sex: Female

DRUGS (1)
  1. ELIDEL [Suspect]
     Active Substance: PIMECROLIMUS
     Indication: ECZEMA
     Route: 065
     Dates: end: 2016

REACTIONS (3)
  - Pruritus [Recovered/Resolved]
  - Burning sensation [Recovered/Resolved]
  - Papule [Recovered/Resolved]

NARRATIVE: CASE EVENT DATE: 2016
